FAERS Safety Report 10023971 (Version 2)
Quarter: 2014Q1

REPORT INFORMATION
  Report Type: Report from Study
  Country: CN (occurrence: CN)
  Receive Date: 20140320
  Receipt Date: 20140324
  Transmission Date: 20141002
  Serious: Yes (Hospitalization, Other)
  Sender: FDA-Public Use
  Company Number: CN-ASTELLAS-2014US002655

PATIENT
  Age: 51 Year
  Sex: Male

DRUGS (1)
  1. ERLOTINIB TABLET [Suspect]
     Indication: NON-SMALL CELL LUNG CANCER
     Dosage: 150 MG, UID/QD
     Route: 048
     Dates: start: 20130123

REACTIONS (6)
  - Muscle injury [Unknown]
  - Limb injury [Unknown]
  - Injury [Unknown]
  - Cervical vertebral fracture [Unknown]
  - Asthenia [Unknown]
  - Fall [Unknown]
